FAERS Safety Report 4582182-4 (Version None)
Quarter: 2005Q1

REPORT INFORMATION
  Report Type: 
  Country: None (occurrence: None)
  Receive Date: 20050210
  Receipt Date: 20050126
  Transmission Date: 20050727
  Serious: Yes (Death, Hospitalization)
  Sender: FDA-Public Use
  Company Number: 2004AL000875

PATIENT
  Age: 45 Year
  Sex: Female

DRUGS (8)
  1. ALPRAZOLAM [Suspect]
     Dosage: PO
     Route: 048
  2. TEMAZEPAM [Suspect]
     Dosage: PO
     Route: 048
  3. ACETAMINOPHEN AND HYDROCODONE BITARTRATE [Suspect]
     Dosage: PO
     Route: 048
  4. CHILDREN'S APAP ELEXIR (ACETAMINOPHEN) (ALPHARMA) [Suspect]
     Dosage: PO
     Route: 048
  5. ACETAMINOPHEN [Suspect]
     Dosage: PO
     Route: 048
  6. DIAZEPAM [Suspect]
     Dosage: PO
     Route: 048
  7. CARISOPRODOL [Suspect]
     Dosage: PO
     Route: 048
  8. TRICYCLIC ANTIDEPRESSANTS [Suspect]
     Dosage: PO
     Route: 048

REACTIONS (9)
  - ACIDOSIS [None]
  - BLOOD LACTIC ACID INCREASED [None]
  - COMPLETED SUICIDE [None]
  - DRUG INEFFECTIVE [None]
  - HAEMODYNAMIC INSTABILITY [None]
  - HEPATORENAL FAILURE [None]
  - INTERNATIONAL NORMALISED RATIO INCREASED [None]
  - MULTIPLE DRUG OVERDOSE [None]
  - PROTHROMBIN TIME PROLONGED [None]
